FAERS Safety Report 10044810 (Version 1)
Quarter: 2014Q1

REPORT INFORMATION
  Report Type: Report from Study
  Country: JP (occurrence: JP)
  Receive Date: 20140328
  Receipt Date: 20140328
  Transmission Date: 20141002
  Serious: Yes (Other)
  Sender: FDA-Public Use
  Company Number: JP-SA-2014SA038984

PATIENT
  Age: 64 Year
  Sex: Male

DRUGS (4)
  1. OXALIPLATIN [Suspect]
     Indication: METASTASES TO LIVER
     Dosage: INTRAVENOUS INFUSION, ON DAY 1
     Route: 042
  2. BEVACIZUMAB [Suspect]
     Indication: METASTASES TO LIVER
     Dosage: ON DAY 1,
     Route: 042
  3. BEVACIZUMAB [Suspect]
     Indication: METASTASES TO LIVER
     Dosage: ON DAY 1, INTRAVENOUS INFUSION
     Route: 042
  4. GIMERACIL/OTERACIL POTASSIUM/TEGAFUR [Suspect]
     Indication: METASTASES TO LIVER
     Dosage: ON DAY 14 OF TREATMENT
     Route: 048

REACTIONS (1)
  - Hepatic steatosis [Unknown]
